FAERS Safety Report 4776288-4 (Version None)
Quarter: 2005Q3

REPORT INFORMATION
  Report Type: 
  Country: None (occurrence: None)
  Receive Date: 20050922
  Receipt Date: 20050826
  Transmission Date: 20060218
  Serious: Yes (Hospitalization)
  Sender: FDA-Public Use
  Company Number: PHNU2005DE02982

PATIENT
  Age: 61 Year
  Sex: Male
  Weight: 73 kg

DRUGS (1)
  1. ZOMETA [Suspect]
     Indication: OSTEOPOROSIS PROPHYLAXIS
     Dosage: 4 MG, ONCE/SINGLE
     Route: 042
     Dates: start: 20050727, end: 20050727

REACTIONS (16)
  - ALANINE AMINOTRANSFERASE INCREASED [None]
  - ARTHRALGIA [None]
  - ASPARTATE AMINOTRANSFERASE INCREASED [None]
  - BLOOD ALKALINE PHOSPHATASE INCREASED [None]
  - BLOOD BILIRUBIN INCREASED [None]
  - BONE PAIN [None]
  - C-REACTIVE PROTEIN INCREASED [None]
  - GAMMA-GLUTAMYLTRANSFERASE INCREASED [None]
  - HEADACHE [None]
  - HEPATIC ENZYME INCREASED [None]
  - HEPATOMEGALY [None]
  - INFLUENZA LIKE ILLNESS [None]
  - LEUKOCYTOSIS [None]
  - MYALGIA [None]
  - PYREXIA [None]
  - SERUM FERRITIN INCREASED [None]
